FAERS Safety Report 21701670 (Version 1)
Quarter: 2022Q4

REPORT INFORMATION
  Report Type: Spontaneous
  Country: US (occurrence: US)
  Receive Date: 20221208
  Receipt Date: 20221208
  Transmission Date: 20230112
  Serious: No
  Sender: FDA-Public Use
  Company Number: US-JNJFOC-20190716511

PATIENT
  Sex: Male

DRUGS (1)
  1. IMODIUM MULTI-SYMPTOM RELIEF [Suspect]
     Active Substance: DIMETHICONE\LOPERAMIDE HYDROCHLORIDE
     Indication: Diarrhoea
     Dosage: PATIENT TOOK 2 PILLS AT FIRST DIARRHEA AND TOOK ANOTHER PILL AFTERWARDS TWICE DAILY
     Route: 048
     Dates: start: 20190703, end: 20190707

REACTIONS (4)
  - Constipation [Unknown]
  - Wrong technique in product usage process [Unknown]
  - Therapeutic product effect incomplete [Unknown]
  - Product label issue [Unknown]

NARRATIVE: CASE EVENT DATE: 20190703
